FAERS Safety Report 12828455 (Version 2)
Quarter: 2016Q4

REPORT INFORMATION
  Report Type: Spontaneous
  Country: US (occurrence: US)
  Receive Date: 20161007
  Receipt Date: 20161205
  Transmission Date: 20170207
  Serious: No
  Sender: FDA-Public Use
  Company Number: US-009507513-1609USA011406

PATIENT
  Sex: Female
  Weight: 131.7 kg

DRUGS (1)
  1. NEXPLANON [Suspect]
     Active Substance: ETONOGESTREL
     Indication: CONTRACEPTION
     Dosage: 1 DF, ARM IMPLANT
     Route: 059
     Dates: start: 20140623

REACTIONS (2)
  - Hepatomegaly [Not Recovered/Not Resolved]
  - Weight increased [Not Recovered/Not Resolved]
